FAERS Safety Report 8588783-0 (Version None)
Quarter: 2012Q3

REPORT INFORMATION
  Report Type: 
  Country: None (occurrence: None)
  Receive Date: 20120813
  Receipt Date: 20120807
  Transmission Date: 20120928
  Serious: Yes (Other)
  Sender: FDA-Public Use
  Company Number: PHHY2012JP068975

PATIENT

DRUGS (1)
  1. DESFERAL [Suspect]
     Dosage: 500 MG, DAILY
     Route: 030
     Dates: start: 20120801, end: 20120805

REACTIONS (2)
  - ANAL EROSION [None]
  - DIARRHOEA [None]
